FAERS Safety Report 5308669-4 (Version None)
Quarter: 2007Q2

REPORT INFORMATION
  Report Type: 
  Country: None (occurrence: None)
  Receive Date: 20070426
  Receipt Date: 20070416
  Transmission Date: 20071010
  Serious: Yes (Death, Other)
  Sender: FDA-Public Use
  Company Number: AU-AMGEN-US216552

PATIENT
  Sex: Female

DRUGS (5)
  1. NEULASTA [Suspect]
     Indication: CHEMOTHERAPY
     Route: 065
  2. ADRIAMYCIN PFS [Concomitant]
     Route: 065
  3. VINBLASTINE SULFATE [Concomitant]
     Route: 065
  4. DACARBAZINE [Concomitant]
     Route: 065
  5. BLEOMYCIN [Concomitant]
     Route: 065

REACTIONS (3)
  - DEATH [None]
  - ENGRAFTMENT SYNDROME [None]
  - RESPIRATORY FAILURE [None]
